FAERS Safety Report 5123270-3 (Version None)
Quarter: 2006Q4

REPORT INFORMATION
  Report Type: 
  Country: None (occurrence: None)
  Receive Date: 20061009
  Receipt Date: 20060809
  Transmission Date: 20070319
  Serious: Yes (Hospitalization)
  Sender: FDA-Public Use
  Company Number: J200602860

PATIENT
  Age: 3 Year
  Sex: Female

DRUGS (4)
  1. SAWACILLIN [Suspect]
     Indication: BRONCHITIS ACUTE
     Dosage: 380MG PER DAY
     Route: 048
     Dates: start: 20060704, end: 20060706
  2. MUCODYNE [Concomitant]
     Indication: BRONCHITIS ACUTE
     Dosage: .4MG THREE TIMES PER DAY
     Route: 048
     Dates: start: 20060704, end: 20060706
  3. MUCOSAL [Concomitant]
     Indication: BRONCHITIS ACUTE
     Dosage: .3MG THREE TIMES PER DAY
     Route: 048
     Dates: start: 20060704, end: 20060706
  4. ANTIBIOTIC RESISTANT LACTIC ACID BACTERIAE [Concomitant]
     Indication: BRONCHITIS ACUTE
     Dosage: 1G PER DAY
     Route: 048
     Dates: start: 20060704, end: 20060706

REACTIONS (4)
  - ABDOMINAL PAIN [None]
  - DIARRHOEA [None]
  - ENTEROCOLITIS HAEMORRHAGIC [None]
  - HAEMATOCHEZIA [None]
